FAERS Safety Report 4264557-6 (Version None)
Quarter: 2004Q1

REPORT INFORMATION
  Report Type: 
  Country: None (occurrence: None)
  Receive Date: 20040106
  Receipt Date: 20031209
  Transmission Date: 20041129
  Serious: Yes (Other)
  Sender: FDA-Public Use
  Company Number: WAES 0312USA01278

PATIENT
  Age: 63 Year
  Sex: Male

DRUGS (4)
  1. PEPCID [Suspect]
     Route: 048
  2. LOXOPROFEN [Concomitant]
  3. PIPERACILLIN [Concomitant]
  4. VALSARTAN [Concomitant]

REACTIONS (3)
  - ANTI-ERYTHROPOIETIN ANTIBODY POSITIVE [None]
  - HAEMOLYTIC ANAEMIA [None]
  - SHUNT OCCLUSION [None]
